FAERS Safety Report 9338408 (Version 1)
Quarter: 2013Q2

REPORT INFORMATION
  Report Type: Spontaneous
  Country: US (occurrence: None)
  Receive Date: 20130605
  Receipt Date: 20130605
  Transmission Date: 20140414
  Serious: Yes (Hospitalization, Other)
  Sender: FDA-Public Use
  Company Number: None

PATIENT
  Age: 65 Year
  Sex: Female
  Weight: 77.3 kg

DRUGS (1)
  1. ATORVASTATIN [Suspect]
     Indication: BLOOD CHOLESTEROL INCREASED
     Dosage: 1 TAB
     Route: 048
     Dates: start: 20120930

REACTIONS (13)
  - Weight decreased [None]
  - Myalgia [None]
  - Asthenia [None]
  - Pain in jaw [None]
  - Musculoskeletal stiffness [None]
  - Sinusitis [None]
  - Oropharyngeal pain [None]
  - Insomnia [None]
  - Activities of daily living impaired [None]
  - Atrial fibrillation [None]
  - Decreased appetite [None]
  - Mastication disorder [None]
  - Influenza like illness [None]
